FAERS Safety Report 6388504-6 (Version None)
Quarter: 2009Q4

REPORT INFORMATION
  Report Type: 
  Country: None (occurrence: None)
  Receive Date: 20091005
  Receipt Date: 20090930
  Transmission Date: 20100525
  Serious: Yes (Life-Threatening, Hospitalization)
  Sender: FDA-Public Use
  Company Number: B0593074A

PATIENT
  Sex: Female
  Weight: 32 kg

DRUGS (6)
  1. TYKERB [Suspect]
     Indication: BREAST CANCER
     Dosage: 1250MG PER DAY
     Route: 048
     Dates: start: 20090901, end: 20090903
  2. CAPECITABINE [Suspect]
     Indication: BREAST CANCER
     Route: 048
     Dates: start: 20090901, end: 20090903
  3. OXYCONTIN [Concomitant]
     Indication: PAIN
     Route: 048
  4. GASTER [Concomitant]
     Route: 048
  5. CALCITRIOL [Concomitant]
     Route: 048
  6. DIPHENHYDRAMINE HCL [Concomitant]

REACTIONS (2)
  - DECREASED APPETITE [None]
  - DIARRHOEA [None]
